FAERS Safety Report 16079659 (Version 1)
Quarter: 2019Q1

REPORT INFORMATION
  Report Type: Report from Study
  Country: CA (occurrence: CA)
  Receive Date: 20190315
  Receipt Date: 20190315
  Transmission Date: 20190418
  Serious: Yes (Other)
  Sender: FDA-Public Use
  Company Number: PHHY2019CA056699

PATIENT
  Sex: Female

DRUGS (4)
  1. LISINOPRIL. [Suspect]
     Active Substance: LISINOPRIL
     Indication: MIGRAINE
     Dosage: UNK
     Route: 065
     Dates: start: 201901
  2. BOTOX [Concomitant]
     Active Substance: ONABOTULINUMTOXINA
     Indication: PRODUCT USED FOR UNKNOWN INDICATION
     Dosage: Q 3 MONTHS
     Route: 065
  3. CANDESARTAN CILEXETIL. [Suspect]
     Active Substance: CANDESARTAN CILEXETIL
     Indication: MIGRAINE
     Dosage: UNK
     Route: 065
     Dates: start: 201804, end: 201811
  4. TOPIRAMATE. [Suspect]
     Active Substance: TOPIRAMATE
     Indication: MIGRAINE
     Dosage: UNK
     Route: 065
     Dates: start: 201811, end: 201812

REACTIONS (4)
  - Drug intolerance [Unknown]
  - Product use in unapproved indication [Unknown]
  - Major depression [Unknown]
  - Asthma [Unknown]
